FAERS Safety Report 9775379 (Version 2)
Quarter: 2013Q4

REPORT INFORMATION
  Report Type: Spontaneous
  Country: US (occurrence: US)
  Receive Date: 20131220
  Receipt Date: 20131220
  Transmission Date: 20140711
  Serious: Yes (Other)
  Sender: FDA-Public Use
  Company Number: US-ABBVIE-13P-163-1104605-00

PATIENT
  Age: 37 Year
  Sex: Female
  Weight: 56.75 kg

DRUGS (8)
  1. SYNTHROID [Suspect]
     Indication: HYPOTHYROIDISM
     Route: 048
     Dates: start: 20130311, end: 20130603
  2. SYNTHROID [Suspect]
     Indication: PROPHYLAXIS
  3. SYNTHROID [Suspect]
     Indication: ABORTION SPONTANEOUS
  4. VITAMEDMD ONE (MULTIVITAMIN, PRENATAL) WITH FOLIC ACID [Concomitant]
     Indication: PRODUCT USED FOR UNKNOWN INDICATION
     Route: 048
     Dates: start: 20130306
  5. CLOMID [Concomitant]
     Indication: PRODUCT USED FOR UNKNOWN INDICATION
     Dosage: 1 PO DAY 5-9
     Route: 048
     Dates: start: 20130429
  6. CLOMID [Concomitant]
     Dosage: 2 PO DAY 5-9
     Route: 048
     Dates: start: 20130531
  7. OVIDREL [Concomitant]
     Indication: OVULATION INDUCTION
     Dosage: 250 MCG/0.5 ML: 2 BY INJECTION
     Route: 058
     Dates: start: 20130429
  8. PROVERA [Concomitant]
     Indication: PRODUCT USED FOR UNKNOWN INDICATION
     Dosage: FOR 5 DAYS
     Route: 048
     Dates: start: 20130513

REACTIONS (6)
  - Loss of consciousness [Recovering/Resolving]
  - Hyperthyroidism [Recovering/Resolving]
  - Blood pressure increased [Recovering/Resolving]
  - Syncope [Recovering/Resolving]
  - Headache [Recovering/Resolving]
  - Blood thyroid stimulating hormone increased [Recovering/Resolving]
